FAERS Safety Report 6304034-1 (Version None)
Quarter: 2009Q3

REPORT INFORMATION
  Report Type: 
  Country: None (occurrence: None)
  Receive Date: 20090810
  Receipt Date: 20090731
  Transmission Date: 20100115
  Serious: Yes (Other)
  Sender: FDA-Public Use
  Company Number: US-PFIZER INC-2005011658

PATIENT
  Sex: Male
  Weight: 135.6 kg

DRUGS (5)
  1. VIAGRA [Suspect]
     Indication: ERECTILE DYSFUNCTION
     Dosage: 25 MG, 1X/DAY
     Route: 048
     Dates: start: 20070101
  2. VALPROIC ACID [Suspect]
  3. ZYPREXA [Concomitant]
  4. ATENOLOL [Concomitant]
  5. RISPERIDONE [Concomitant]

REACTIONS (7)
  - DRUG INEFFECTIVE [None]
  - EJACULATION FAILURE [None]
  - ERECTILE DYSFUNCTION [None]
  - ERECTION INCREASED [None]
  - GENITAL INJURY [None]
  - PAINFUL ERECTION [None]
  - SENSORY LOSS [None]
